FAERS Safety Report 8437936-0 (Version None)
Quarter: 2012Q2

REPORT INFORMATION
  Report Type: 
  Country: None (occurrence: None)
  Receive Date: 20120614
  Receipt Date: 20120523
  Transmission Date: 20120825
  Serious: No
  Sender: FDA-Public Use
  Company Number: US-AMGEN-USASP2012032337

PATIENT
  Age: 53 Year
  Sex: Female

DRUGS (6)
  1. PROLIA [Suspect]
     Indication: OSTEOPOROSIS POSTMENOPAUSAL
     Dosage: 60 MG, Q6MO
     Dates: start: 20101101
  2. SYNTHROID [Concomitant]
  3. CLOBETASOL PROPIONATE [Concomitant]
     Dates: start: 20110901, end: 20110901
  4. CLOBETASOL PROPIONATE [Concomitant]
     Dates: start: 20110901, end: 20110901
  5. VITAMIN D [Concomitant]
     Dosage: UNK
  6. CALCIUM [Concomitant]
     Dosage: UNK

REACTIONS (6)
  - ECZEMA [None]
  - SLEEP DISORDER [None]
  - WEIGHT INCREASED [None]
  - FOOD POISONING [None]
  - BACK PAIN [None]
  - BURNING SENSATION [None]
